FAERS Safety Report 24465742 (Version 1)
Quarter: 2024Q4

REPORT INFORMATION
  Report Type: Report from Study
  Country: US (occurrence: US)
  Receive Date: 20241018
  Receipt Date: 20241018
  Transmission Date: 20250115
  Serious: No
  Sender: ROCHE
  Company Number: US-ROCHE-3524710

PATIENT
  Age: 71 Year
  Sex: Female
  Weight: 88.45 kg

DRUGS (2)
  1. XOLAIR [Suspect]
     Active Substance: OMALIZUMAB
     Indication: Urticaria
     Dosage: YES
     Route: 058
     Dates: start: 20240206
  2. HYDROXYZINE [Concomitant]
     Active Substance: HYDROXYZINE HYDROCHLORIDE
     Dosage: HYDROXYZINE

REACTIONS (6)
  - Dyspnoea [Not Recovered/Not Resolved]
  - Pruritus [Recovering/Resolving]
  - Dysphagia [Not Recovered/Not Resolved]
  - Choking [Unknown]
  - Drug ineffective [Unknown]
  - Upper-airway cough syndrome [Unknown]
